FAERS Safety Report 12393655 (Version 2)
Quarter: 2016Q3

REPORT INFORMATION
  Report Type: Report from Study
  Country: DE (occurrence: DE)
  Receive Date: 20160523
  Receipt Date: 20160708
  Transmission Date: 20161109
  Serious: Yes (Hospitalization, Other)
  Sender: FDA-Public Use
  Company Number: DE-ROCHE-1761566

PATIENT
  Age: 53 Year
  Sex: Male
  Weight: 76 kg

DRUGS (20)
  1. ONDANSETRON [Concomitant]
     Active Substance: ONDANSETRON
     Route: 065
  2. CLOPIDOGREL [Concomitant]
     Active Substance: CLOPIDOGREL BISULFATE
     Route: 065
  3. PANTOPRAZOL [Concomitant]
     Active Substance: PANTOPRAZOLE SODIUM
     Route: 065
  4. OBINUTUZUMAB [Suspect]
     Active Substance: OBINUTUZUMAB
     Indication: CHRONIC LYMPHOCYTIC LEUKAEMIA
     Route: 042
     Dates: start: 20160324, end: 20160511
  5. ALLOPURINOL. [Concomitant]
     Active Substance: ALLOPURINOL
     Route: 065
  6. FENISTIL (GERMANY) [Concomitant]
     Route: 065
  7. ASPIRIN. [Concomitant]
     Active Substance: ASPIRIN
     Route: 065
  8. RAMILICH [Concomitant]
     Active Substance: RAMIPRIL
     Route: 065
  9. GABAPENTIN. [Concomitant]
     Active Substance: GABAPENTIN
     Route: 065
  10. METOPROLOL SUCCINATE. [Concomitant]
     Active Substance: METOPROLOL SUCCINATE
     Route: 065
  11. CHLORAMBUCIL [Concomitant]
     Active Substance: CHLORAMBUCIL
     Route: 048
  12. TARGIN [Concomitant]
     Active Substance: NALOXONE HYDROCHLORIDE\OXYCODONE HYDROCHLORIDE
     Route: 065
  13. PROTAPHAN [Concomitant]
     Route: 065
  14. PANGROL [Concomitant]
     Route: 065
  15. PARACETAMOL [Concomitant]
     Active Substance: ACETAMINOPHEN
     Route: 065
  16. ACTRAPID [Concomitant]
     Active Substance: INSULIN HUMAN
  17. VERGENTAN [Concomitant]
  18. LEUKERAN [Concomitant]
     Active Substance: CHLORAMBUCIL
     Route: 065
  19. EPLERENONA [Concomitant]
     Active Substance: EPLERENONE
     Route: 065
  20. TORASEMID [Concomitant]
     Active Substance: TORSEMIDE
     Route: 065

REACTIONS (2)
  - Dyspnoea [Recovered/Resolved]
  - Pleural effusion [Unknown]

NARRATIVE: CASE EVENT DATE: 20160518
